FAERS Safety Report 5329858-9 (Version None)
Quarter: 2007Q2

REPORT INFORMATION
  Report Type: 
  Country: None (occurrence: None)
  Receive Date: 20070517
  Receipt Date: 20070517
  Transmission Date: 20071010
  Serious: Yes (Hospitalization)
  Sender: FDA-Public Use
  Company Number: None

PATIENT
  Age: 67 Year
  Sex: Male
  Weight: 65.318 kg

DRUGS (2)
  1. TAXOTERE [Suspect]
     Indication: LUNG NEOPLASM MALIGNANT
     Dosage: 30 MG/M2 = 55.5MG IV ON 1,8,15,Q 28 DAYS
     Route: 042
     Dates: start: 20070126, end: 20070209
  2. GLEEVEC [Suspect]
     Indication: LUNG NEOPLASM MALIGNANT
     Dosage: 600 MG Q DAY PO
     Route: 048
     Dates: start: 20070126, end: 20070222

REACTIONS (5)
  - DIARRHOEA [None]
  - DIZZINESS [None]
  - FATIGUE [None]
  - ORAL INTAKE REDUCED [None]
  - URINE OUTPUT DECREASED [None]
